FAERS Safety Report 8240729-0 (Version None)
Quarter: 2012Q1

REPORT INFORMATION
  Report Type: 
  Country: None (occurrence: None)
  Receive Date: 20120328
  Receipt Date: 20120322
  Transmission Date: 20120608
  Serious: Yes (Disabling, Other)
  Sender: FDA-Public Use
  Company Number: DE-UCBSA-053945

PATIENT

DRUGS (1)
  1. VIMPAT [Suspect]
     Indication: EPILEPSY
     Dates: end: 20090101

REACTIONS (1)
  - POLLAKIURIA [None]
